FAERS Safety Report 12977649 (Version 4)
Quarter: 2016Q4

REPORT INFORMATION
  Report Type: Spontaneous
  Country: CA (occurrence: CA)
  Receive Date: 20161128
  Receipt Date: 20161216
  Transmission Date: 20170207
  Serious: Yes (Other)
  Sender: FDA-Public Use
  Company Number: CA-CONCORDIA PHARMACEUTICALS INC.-E2B_00007922

PATIENT
  Age: 55 Year
  Sex: Female

DRUGS (6)
  1. CELEBREX [Concomitant]
     Active Substance: CELECOXIB
     Indication: PRODUCT USED FOR UNKNOWN INDICATION
     Route: 065
  2. XELJANZ [Concomitant]
     Active Substance: TOFACITINIB CITRATE
     Indication: RHEUMATOID ARTHRITIS
     Route: 065
     Dates: start: 20141001
  3. TENS THERAPY [Concomitant]
     Indication: PRODUCT USED FOR UNKNOWN INDICATION
  4. SIMPONI [Concomitant]
     Active Substance: GOLIMUMAB
     Indication: PRODUCT USED FOR UNKNOWN INDICATION
     Route: 065
     Dates: end: 20140911
  5. PLAQUENIL [Suspect]
     Active Substance: HYDROXYCHLOROQUINE SULFATE
     Indication: RHEUMATOID ARTHRITIS
     Route: 065
  6. METHOTREXATE. [Concomitant]
     Active Substance: METHOTREXATE
     Indication: PRODUCT USED FOR UNKNOWN INDICATION
     Route: 065

REACTIONS (17)
  - Plantar fasciitis [Recovering/Resolving]
  - Sputum discoloured [Unknown]
  - Lower respiratory tract infection [Recovered/Resolved]
  - Lyme disease [Unknown]
  - Fatigue [Unknown]
  - Arthralgia [Unknown]
  - Peripheral swelling [Not Recovered/Not Resolved]
  - Tendon injury [Unknown]
  - Rheumatoid arthritis [Unknown]
  - Herpes zoster [Recovered/Resolved]
  - Pain in extremity [Unknown]
  - Tendon pain [Not Recovered/Not Resolved]
  - Dysphonia [Recovered/Resolved]
  - Sciatica [Unknown]
  - Cough [Recovered/Resolved]
  - Limb discomfort [Not Recovered/Not Resolved]
  - Bronchitis [Recovered/Resolved]

NARRATIVE: CASE EVENT DATE: 20160627
